FAERS Safety Report 19176393 (Version 1)
Quarter: 2021Q2

REPORT INFORMATION
  Report Type: Spontaneous
  Country: US (occurrence: US)
  Receive Date: 20210423
  Receipt Date: 20210423
  Transmission Date: 20210717
  Serious: Yes (Hospitalization, Other)
  Sender: FDA-Public Use
  Company Number: US-LEUCADIA PHARMACEUTICALS-2021LEU000125

PATIENT
  Age: 25 Year
  Sex: Female

DRUGS (3)
  1. ACETAMINOPHEN. [Suspect]
     Active Substance: ACETAMINOPHEN
     Indication: TOOTHACHE
     Dosage: 500 MG, UNK
     Route: 048
  2. ACETAMINOPHEN W/HYDROCODONE [Suspect]
     Active Substance: ACETAMINOPHEN\HYDROCODONE
     Indication: TOOTHACHE
     Dosage: 5/300MG, THREE TO FOUR TIMES DAILY
     Route: 048
  3. ACETAMINOPHEN. [Suspect]
     Active Substance: ACETAMINOPHEN
     Dosage: 3,000?4,000 MG QD
     Route: 048

REACTIONS (4)
  - Abdominal pain [Unknown]
  - Toxicity to various agents [Unknown]
  - Metabolic acidosis [Recovered/Resolved]
  - Exposure during pregnancy [Unknown]
